FAERS Safety Report 6516069-4 (Version None)
Quarter: 2009Q4

REPORT INFORMATION
  Report Type: 
  Country: None (occurrence: None)
  Receive Date: 20091223
  Receipt Date: 20091215
  Transmission Date: 20100525
  Serious: No
  Sender: FDA-Public Use
  Company Number: US-ABBOTT-09P-163-0614730-00

PATIENT
  Sex: Male
  Weight: 77.18 kg

DRUGS (9)
  1. LUPRON DEPOT [Suspect]
     Indication: PROSTATE CANCER
     Dates: start: 20090301, end: 20090901
  2. PROAIR HFA [Concomitant]
     Indication: ASTHMA
  3. IBUPROFEN [Concomitant]
     Indication: ARTHRALGIA
  4. VITAMIN D [Concomitant]
     Indication: BONE DISORDER
  5. VITAMIN D [Concomitant]
     Indication: RADIATION INJURY
  6. XANAX [Concomitant]
     Indication: ANXIETY
  7. XANAX [Concomitant]
     Indication: PANIC ATTACK
  8. ACETAMINOPHEN AND HYDROCODONE BITARTRATE [Concomitant]
     Indication: FALL
     Dosage: 5/325 MG
  9. ACETAMINOPHEN AND HYDROCODONE BITARTRATE [Concomitant]
     Indication: UPPER LIMB FRACTURE

REACTIONS (2)
  - NIGHT SWEATS [None]
  - SLEEP DISORDER [None]
